FAERS Safety Report 24393693 (Version 2)
Quarter: 2024Q4

REPORT INFORMATION
  Report Type: Spontaneous
  Country: GB (occurrence: GB)
  Receive Date: 20241003
  Receipt Date: 20241107
  Transmission Date: 20250115
  Serious: Yes (Hospitalization, Other)
  Sender: ADVANZ PHARMA
  Company Number: GB-LDELTA-NLLD0004751

PATIENT

DRUGS (10)
  1. PREDNISOLONE [Interacting]
     Active Substance: PREDNISOLONE
     Dosage: UNK
     Dates: start: 20100326, end: 2011
  2. CLOZAPINE [Suspect]
     Active Substance: CLOZAPINE
     Dosage: 600 MG, QD
     Dates: start: 20070510
  3. RITUXIMAB [Interacting]
     Active Substance: RITUXIMAB
     Dosage: UNK
     Dates: start: 20100326, end: 2011
  4. CYCLOPHOSPHAMIDE [Interacting]
     Active Substance: CYCLOPHOSPHAMIDE
     Dosage: UNK
     Dates: start: 20100326, end: 2011
  5. DOXORUBICIN [Interacting]
     Active Substance: DOXORUBICIN
     Dosage: UNK
     Dates: start: 20100326, end: 2011
  6. VINCRISTINE [Interacting]
     Active Substance: VINCRISTINE
     Dosage: UNK
     Dates: end: 2011
  7. VINCRISTINE [Interacting]
     Active Substance: VINCRISTINE
     Dates: end: 2011
  8. LANSOPRAZOLE [Concomitant]
     Active Substance: LANSOPRAZOLE
     Dosage: 15 MG, QD
  9. VITAMIN B12 [Concomitant]
     Active Substance: CYANOCOBALAMIN
     Dosage: EVERY 3/12
     Dates: start: 2007
  10. AMISULPRIDE [Concomitant]
     Active Substance: AMISULPRIDE
     Dosage: 400 MG, QD
     Dates: start: 2005

REACTIONS (4)
  - Non-Hodgkin^s lymphoma unspecified histology indolent stage IV [Not Recovered/Not Resolved]
  - Diffuse large B-cell lymphoma [Not Recovered/Not Resolved]
  - Neutropenia [Recovered/Resolved]
  - Leukopenia [Recovered/Resolved]

NARRATIVE: CASE EVENT DATE: 20100201
